FAERS Safety Report 23240203 (Version 1)
Quarter: 2023Q4

REPORT INFORMATION
  Report Type: Spontaneous
  Country: US (occurrence: US)
  Receive Date: 20231129
  Receipt Date: 20231129
  Transmission Date: 20240109
  Serious: No
  Sender: FDA-Public Use
  Company Number: US-009507513-2311USA009179

PATIENT
  Sex: Male

DRUGS (4)
  1. INVANZ [Suspect]
     Active Substance: ERTAPENEM SODIUM
     Indication: Device related infection
     Dosage: UNK
  2. INVANZ [Suspect]
     Active Substance: ERTAPENEM SODIUM
     Indication: Staphylococcal infection
  3. INVANZ [Suspect]
     Active Substance: ERTAPENEM SODIUM
     Indication: Bacteraemia
  4. INVANZ [Suspect]
     Active Substance: ERTAPENEM SODIUM
     Indication: Medical device site abscess

REACTIONS (1)
  - Product use in unapproved indication [Unknown]
